FAERS Safety Report 16765936 (Version 1)
Quarter: 2019Q3

REPORT INFORMATION
  Report Type: Spontaneous
  Country: US (occurrence: US)
  Receive Date: 20190903
  Receipt Date: 20190903
  Transmission Date: 20191005
  Serious: Yes (Other)
  Sender: FDA-Public Use
  Company Number: US-GILEAD-2019-0425746

PATIENT
  Sex: Female

DRUGS (1)
  1. ATRIPLA [Suspect]
     Active Substance: EFAVIRENZ\EMTRICITABINE\TENOFOVIR DISOPROXIL FUMARATE
     Indication: HIV INFECTION
     Dosage: UNK
     Route: 048
     Dates: start: 2007, end: 2019

REACTIONS (10)
  - Anxiety [Unknown]
  - Tooth loss [Unknown]
  - Foot fracture [Unknown]
  - Nephropathy [Unknown]
  - Osteoporosis [Unknown]
  - Pain [Unknown]
  - Bone density decreased [Unknown]
  - Emotional distress [Unknown]
  - Economic problem [Unknown]
  - Anhedonia [Unknown]

NARRATIVE: CASE EVENT DATE: 2019
